FAERS Safety Report 8970381 (Version 1)
Quarter: 2012Q4

REPORT INFORMATION
  Report Type: 
  Country: US (occurrence: US)
  Receive Date: 20121218
  Receipt Date: 20121218
  Transmission Date: 20130627
  Serious: No
  Sender: FDA-Public Use
  Company Number: US-BRISTOL-MYERS SQUIBB COMPANY-17054701

PATIENT
  Age: 48 Year
  Sex: Male
  Weight: 70.29 kg

DRUGS (2)
  1. ABILIFY TABS 5 MG [Suspect]
     Indication: DEPRESSION
     Dosage: 1 Df:1/2 tabs for first 4 days then 1 tab from 5th day
  2. PRISTIQ [Suspect]

REACTIONS (2)
  - Restlessness [Unknown]
  - Asthenia [Unknown]
